FAERS Safety Report 21037182 (Version 3)
Quarter: 2023Q1

REPORT INFORMATION
  Report Type: Spontaneous
  Country: US (occurrence: US)
  Receive Date: 20220703
  Receipt Date: 20230203
  Transmission Date: 20230417
  Serious: Yes (Hospitalization, Other)
  Sender: FDA-Public Use
  Company Number: US-BRISTOL-MYERS SQUIBB COMPANY-2022-061527

PATIENT
  Age: 84 Year
  Sex: Male

DRUGS (1)
  1. POMALYST [Suspect]
     Active Substance: POMALIDOMIDE
     Indication: Product used for unknown indication
     Route: 048
     Dates: start: 202206

REACTIONS (2)
  - Pneumonia [Unknown]
  - Product dose omission issue [Unknown]
